FAERS Safety Report 17674835 (Version 2)
Quarter: 2020Q2

REPORT INFORMATION
  Report Type: Report from Study
  Country: CO (occurrence: CO)
  Receive Date: 20200416
  Receipt Date: 20200430
  Transmission Date: 20200714
  Serious: Yes (Hospitalization, Other)
  Sender: FDA-Public Use
  Company Number: CO-ASTELLAS-2019US035043

PATIENT
  Age: 35 Year
  Sex: Male
  Weight: 52 kg

DRUGS (11)
  1. TACROLIMUS. [Suspect]
     Active Substance: TACROLIMUS
     Indication: PROPHYLAXIS AGAINST TRANSPLANT REJECTION
     Dosage: 9 MG, EVERY 24 HOURS (1 CAPSULE OF 5 MG AND 4 CAPSULES OF 1 MG)
     Route: 048
     Dates: start: 20190522, end: 20190815
  2. TACROLIMUS. [Suspect]
     Active Substance: TACROLIMUS
     Dosage: 7 MG, ONCE DAILY (1X 5 MG AND 4 X 0.5 MG)
     Route: 048
     Dates: start: 20200128, end: 20200302
  3. MYCOPHENOLATE [Suspect]
     Active Substance: MYCOPHENOLIC ACID
     Route: 048
     Dates: start: 201909, end: 201909
  4. TACROLIMUS. [Suspect]
     Active Substance: TACROLIMUS
     Dosage: 10 MG, EVERY 24 HOURS (2 CAPSULES OF 5MG)
     Route: 048
     Dates: start: 20190816
  5. PREDNISOLONE. [Concomitant]
     Active Substance: PREDNISOLONE
     Indication: RENAL DISORDER
     Route: 048
     Dates: start: 20190521
  6. PREDNISOLONE. [Concomitant]
     Active Substance: PREDNISOLONE
     Indication: PRODUCT USED FOR UNKNOWN INDICATION
     Route: 048
     Dates: start: 201906
  7. TACROLIMUS. [Suspect]
     Active Substance: TACROLIMUS
     Dosage: 7 MG, ONCE DAILY (1X 5 MG AND 2 X 1 MG)
     Route: 048
     Dates: start: 20200303
  8. ACICLOVIR [Suspect]
     Active Substance: ACYCLOVIR
     Indication: PRODUCT USED FOR UNKNOWN INDICATION
     Dosage: UNK UNK, UNKNOWN FREQ.
     Route: 065
  9. TRIMETHOPRIM. [Concomitant]
     Active Substance: TRIMETHOPRIM
     Indication: KIDNEY TRANSPLANT REJECTION
     Route: 048
     Dates: start: 20190521
  10. TACROLIMUS. [Suspect]
     Active Substance: TACROLIMUS
     Dosage: 10 MG, ONCE DAILY (2 X 5 MG)
     Route: 048
     Dates: end: 20200127
  11. MYCOPHENOLATE [Suspect]
     Active Substance: MYCOPHENOLIC ACID
     Indication: PROPHYLAXIS AGAINST TRANSPLANT REJECTION
     Route: 048
     Dates: start: 20190522, end: 201909

REACTIONS (8)
  - Swelling face [Recovered/Resolved]
  - Vomiting [Recovered/Resolved]
  - Blood creatinine increased [Not Recovered/Not Resolved]
  - Diarrhoea [Recovered/Resolved]
  - Inflammation [Recovered/Resolved]
  - Kidney transplant rejection [Recovered/Resolved]
  - Blood creatinine increased [Recovering/Resolving]
  - Diarrhoea [Recovered/Resolved]

NARRATIVE: CASE EVENT DATE: 201905
